FAERS Safety Report 4650382-0 (Version None)
Quarter: 2005Q2

REPORT INFORMATION
  Report Type: 
  Country: None (occurrence: None)
  Receive Date: 20050502
  Receipt Date: 20050422
  Transmission Date: 20051028
  Serious: Yes (Disabling)
  Sender: FDA-Public Use
  Company Number: US-ABBOTT-05P-163-0298295-00

PATIENT
  Sex: Female
  Weight: 68.1 kg

DRUGS (3)
  1. DEPAKOTE [Suspect]
     Indication: MANIA
     Route: 048
     Dates: start: 20050324, end: 20050330
  2. INFLIXIMAB [Concomitant]
     Indication: CROHN'S DISEASE
     Dates: start: 20050317
  3. MESALAMINE [Concomitant]
     Indication: CROHN'S DISEASE
     Dates: start: 19990101

REACTIONS (8)
  - CONFUSIONAL STATE [None]
  - DISSOCIATION [None]
  - DYSARTHRIA [None]
  - FEELING HOT [None]
  - GAIT DISTURBANCE [None]
  - INSOMNIA [None]
  - MUSCLE RIGIDITY [None]
  - PAIN IN EXTREMITY [None]
